FAERS Safety Report 6356167-1 (Version None)
Quarter: 2009Q3

REPORT INFORMATION
  Report Type: 
  Country: None (occurrence: None)
  Receive Date: 20090914
  Receipt Date: 20090914
  Transmission Date: 20100115
  Serious: Yes (Hospitalization)
  Sender: FDA-Public Use
  Company Number: None

PATIENT
  Age: 47 Year
  Sex: Male
  Weight: 108.8633 kg

DRUGS (1)
  1. ULORIC [Suspect]
     Indication: GOUT
     Dosage: 40MG ONCE A DAY
     Dates: start: 20090701, end: 20090901

REACTIONS (4)
  - ARTHRALGIA [None]
  - BLOOD URINE PRESENT [None]
  - PYREXIA [None]
  - RENAL DISORDER [None]
